FAERS Safety Report 12188511 (Version 1)
Quarter: 2016Q1

REPORT INFORMATION
  Report Type: Report from Study
  Country: US (occurrence: US)
  Receive Date: 20160317
  Receipt Date: 20160317
  Transmission Date: 20160526
  Serious: Yes (Death, Other)
  Sender: FDA-Public Use
  Company Number: US-BRISTOL-MYERS SQUIBB COMPANY-BMS-2016-016788

PATIENT
  Sex: Female
  Weight: 84 kg

DRUGS (9)
  1. BELATACEPT [Suspect]
     Active Substance: BELATACEPT
     Indication: PRODUCT USED FOR UNKNOWN INDICATION
     Dosage: 1000 MG, UNK
     Route: 065
     Dates: start: 20120326
  2. METHYLPREDNISOLONE. [Concomitant]
     Active Substance: METHYLPREDNISOLONE
     Indication: TRANSPLANT
     Dosage: UNK
     Route: 065
     Dates: start: 20120326
  3. SOLU-MEDROL [Concomitant]
     Active Substance: METHYLPREDNISOLONE SODIUM SUCCINATE
     Indication: TRANSPLANT
     Dosage: UNK
     Route: 065
     Dates: start: 20120326
  4. SIMULECT [Concomitant]
     Active Substance: BASILIXIMAB
     Indication: TRANSPLANT
     Route: 065
  5. DECADRON [Concomitant]
     Active Substance: DEXAMETHASONE
     Indication: TRANSPLANT
     Dosage: UNK
     Route: 065
  6. MYCOPHENOLATE MOFETIL. [Concomitant]
     Active Substance: MYCOPHENOLATE MOFETIL
     Indication: TRANSPLANT
     Dosage: 2000 MG, QD
     Route: 065
     Dates: start: 20120326
  7. PREDNISONE. [Concomitant]
     Active Substance: PREDNISONE
     Indication: TRANSPLANT
     Dosage: UNK
     Route: 065
     Dates: start: 20130326
  8. ZENAPAX [Concomitant]
     Active Substance: DACLIZUMAB
     Indication: TRANSPLANT
     Dosage: UNK
     Route: 065
     Dates: start: 20120326, end: 20120329
  9. MEDROL [Concomitant]
     Active Substance: METHYLPREDNISOLONE
     Indication: TRANSPLANT
     Dosage: UNK
     Route: 065
     Dates: start: 20120326

REACTIONS (1)
  - Colon cancer [Fatal]
